FAERS Safety Report 4779741-2 (Version None)
Quarter: 2005Q3

REPORT INFORMATION
  Report Type: 
  Country: None (occurrence: None)
  Receive Date: 20050914
  Receipt Date: 20050408
  Transmission Date: 20060218
  Serious: Yes (Death, Hospitalization)
  Sender: FDA-Public Use
  Company Number: 163-20785-04110338

PATIENT
  Age: 67 Year
  Sex: Female
  Weight: 51.2565 kg

DRUGS (25)
  1. THALOMID [Suspect]
     Indication: MULTIPLE MYELOMA
     Dosage: SEE IMAGE
     Route: 048
     Dates: start: 20010815, end: 20020226
  2. THALOMID [Suspect]
     Indication: MULTIPLE MYELOMA
     Dosage: SEE IMAGE
     Route: 048
     Dates: start: 20020411, end: 20050228
  3. PREDNISONE [Suspect]
     Indication: MULTIPLE MYELOMA
     Dosage: 50 MG, QOD, ORAL
     Route: 048
     Dates: start: 20020411
  4. ALBUTEROL (SALABUTAMOL) [Concomitant]
  5. ZOLOFT [Concomitant]
  6. ATIVAN [Concomitant]
  7. METOPROLOL TARTRATE [Concomitant]
  8. VICODIN [Concomitant]
  9. ZITHROMAX Z-PACK (AZITHROMYCIN) (TABLETS) [Concomitant]
  10. HUMBID (GUAIFENESIN) (INJECTION) [Concomitant]
  11. CLARITIN [Concomitant]
  12. AMBIEN [Concomitant]
  13. LASIX [Concomitant]
  14. NEXIUM (ESCOMEPRAZOLE) [Concomitant]
  15. ZYPREXA [Concomitant]
  16. PAMIDRONATE DISODIUM [Concomitant]
  17. IMMUNOGLOBULINS (IMMUNOGLOBULINS) [Concomitant]
  18. CENTRUM SILVER (CENTRUM SILVER) [Concomitant]
  19. LORATADINE [Concomitant]
  20. FLONASE NASAL SPRAY (FLUTICASONE PROPIONATE) [Concomitant]
  21. DIFLUCAN [Concomitant]
  22. LEVAQUIN [Concomitant]
  23. LOVENOX [Concomitant]
  24. ZOMETA (ZOLENDRONIC AICD) [Concomitant]
  25. TYLENOL [Concomitant]

REACTIONS (8)
  - ATELECTASIS [None]
  - BRONCHITIS [None]
  - CARDIO-RESPIRATORY ARREST [None]
  - CATHETER RELATED INFECTION [None]
  - DISEASE PROGRESSION [None]
  - RESPIRATORY ARREST [None]
  - RESPIRATORY DISTRESS [None]
  - STAPHYLOCOCCAL INFECTION [None]
